FAERS Safety Report 16646442 (Version 4)
Quarter: 2020Q1

REPORT INFORMATION
  Report Type: Report from Study
  Country: IE (occurrence: IE)
  Receive Date: 20190730
  Receipt Date: 20200121
  Transmission Date: 20200409
  Serious: Yes (Other)
  Sender: FDA-Public Use
  Company Number: IE-IPSEN BIOPHARMACEUTICALS, INC.-2019-13377

PATIENT
  Age: 68 Year
  Sex: Male

DRUGS (7)
  1. QUININE [Concomitant]
     Active Substance: QUININE
     Route: 050
  2. SOMATULINE AUTOGEL [Suspect]
     Active Substance: LANREOTIDE ACETATE
     Indication: NEUROENDOCRINE TUMOUR
     Route: 058
     Dates: start: 20190628
  3. DELTACORTRIL [Concomitant]
     Active Substance: PREDNISOLONE
     Route: 050
  4. ATORVASTATIN [Concomitant]
     Active Substance: ATORVASTATIN
     Route: 050
  5. VALOID [Concomitant]
     Active Substance: CYCLIZINE HYDROCHLORIDE
     Route: 050
  6. LYRICA [Concomitant]
     Active Substance: PREGABALIN
     Route: 050
  7. CLARITHROMYCIN. [Concomitant]
     Active Substance: CLARITHROMYCIN
     Route: 050

REACTIONS (4)
  - Vomiting [Unknown]
  - Inappropriate schedule of product administration [Unknown]
  - Lower respiratory tract infection [Not Recovered/Not Resolved]
  - Injection site mass [Recovering/Resolving]

NARRATIVE: CASE EVENT DATE: 20190710
